FAERS Safety Report 6600187-6 (Version None)
Quarter: 2010Q1

REPORT INFORMATION
  Report Type: 
  Country: None (occurrence: None)
  Receive Date: 20100224
  Receipt Date: 20100216
  Transmission Date: 20100710
  Serious: Yes (Hospitalization)
  Sender: FDA-Public Use
  Company Number: B0624201A

PATIENT
  Sex: Female
  Weight: 41 kg

DRUGS (1)
  1. VALTREX [Suspect]
     Indication: HERPES ZOSTER
     Dosage: 500MG THREE TIMES PER DAY
     Route: 048
     Dates: start: 20091222, end: 20091229

REACTIONS (4)
  - ALTERED STATE OF CONSCIOUSNESS [None]
  - ASTERIXIS [None]
  - ENCEPHALOPATHY [None]
  - SOMNOLENCE [None]
